FAERS Safety Report 5046083-X (Version None)
Quarter: 2006Q3

REPORT INFORMATION
  Report Type: 
  Country: None (occurrence: None)
  Receive Date: 20060710
  Receipt Date: 20050601
  Transmission Date: 20061208
  Serious: Yes (Hospitalization)
  Sender: FDA-Public Use
  Company Number: JP-AVENTIS-200511644JP

PATIENT
  Age: 30 Year
  Sex: Female
  Weight: 56 kg

DRUGS (3)
  1. LANTUS [Suspect]
     Indication: DIABETES MELLITUS INSULIN-DEPENDENT
     Route: 058
     Dates: start: 20031226
  2. OPTIPEN (INSULIN PUMP) [Suspect]
  3. HUMALOG [Concomitant]
     Dosage: DOSE: 13 - 17 UNITS
     Route: 058
     Dates: start: 20011005

REACTIONS (2)
  - DIABETIC RETINOPATHY [None]
  - VITREOUS HAEMORRHAGE [None]
